FAERS Safety Report 7062938-9 (Version None)
Quarter: 2010Q4

REPORT INFORMATION
  Report Type: 
  Country: None (occurrence: None)
  Receive Date: 20101026
  Receipt Date: 20100305
  Transmission Date: 20110411
  Serious: No
  Sender: FDA-Public Use
  Company Number: US-PFIZER INC-2010028943

PATIENT
  Age: 49 Year
  Sex: Male

DRUGS (3)
  1. LIPITOR [Suspect]
     Indication: PRODUCT USED FOR UNKNOWN INDICATION
     Dosage: UNK
  2. NASONEX [Suspect]
     Indication: HYPERSENSITIVITY
     Dosage: 50 MCG, UNK
     Route: 045
  3. ASX [Concomitant]
     Dosage: UNK

REACTIONS (2)
  - GINGIVAL PAIN [None]
  - PARAESTHESIA ORAL [None]
